FAERS Safety Report 5992840-2 (Version None)
Quarter: 2008Q4

REPORT INFORMATION
  Report Type: 
  Country: None (occurrence: None)
  Receive Date: 20081209
  Receipt Date: 20080904
  Transmission Date: 20090506
  Serious: Yes (Other)
  Sender: FDA-Public Use
  Company Number: 002#1#2008-00589

PATIENT
  Age: 67 Year
  Sex: Male
  Weight: 56.246 kg

DRUGS (6)
  1. NEUPRO [Suspect]
     Indication: PARKINSON'S DISEASE
     Dosage: 6MG/24H,1 IN 1 D,TRANSDERMAL
     Route: 062
     Dates: start: 20071101, end: 20080501
  2. MIRAPEX [Suspect]
     Indication: PARKINSON'S DISEASE
     Dosage: .5MG,1 IN 1 D
  3. STALEVO 100 [Concomitant]
  4. AMANTADINE HCL [Concomitant]
  5. SINEMET [Concomitant]
  6. PREDNISONE [Concomitant]

REACTIONS (2)
  - DYSKINESIA [None]
  - PARKINSON'S DISEASE [None]
